FAERS Safety Report 22649800 (Version 1)
Quarter: 2023Q2

REPORT INFORMATION
  Report Type: Spontaneous
  Country: US (occurrence: US)
  Receive Date: 20230628
  Receipt Date: 20230628
  Transmission Date: 20230722
  Serious: No
  Sender: FDA-Public Use
  Company Number: US-BAYER-2023A085166

PATIENT
  Sex: Female

DRUGS (2)
  1. ALEVE [Suspect]
     Active Substance: NAPROXEN SODIUM
     Indication: Pain
     Dosage: 1 DF, QD
  2. ALEVE [Suspect]
     Active Substance: NAPROXEN SODIUM
     Indication: Tooth extraction

REACTIONS (3)
  - Gastritis [Not Recovered/Not Resolved]
  - Product use in unapproved indication [None]
  - Product use issue [None]
